FAERS Safety Report 8157766 (Version 3)
Quarter: 2013Q1

REPORT INFORMATION
  Report Type: Spontaneous
  Country: US (occurrence: US)
  Receive Date: 20110927
  Receipt Date: 20130218
  Transmission Date: 20140127
  Serious: Yes (Other)
  Sender: FDA-Public Use
  Company Number: US-ASTRAZENECA-2011SE12658

PATIENT
  Sex: 0

DRUGS (14)
  1. SEROQUEL [Suspect]
     Route: 048
     Dates: start: 20030909
  2. SEROQUEL [Suspect]
     Route: 048
     Dates: start: 20101127
  3. ZONEGRAN [Concomitant]
     Dates: start: 20030902
  4. ABILIFY [Concomitant]
     Dosage: 10-30 MG
     Dates: start: 20030923
  5. ABILIFY [Concomitant]
     Dates: start: 20101228
  6. PAXIL CR [Concomitant]
     Dosage: 25-37.5 MG
     Dates: start: 20030923
  7. PAXIL CR [Concomitant]
     Dates: start: 20101126
  8. TRIHEXYPHEN [Concomitant]
     Dates: start: 20030923
  9. LAMICTAL [Concomitant]
     Dates: start: 20070807
  10. LAMICTAL [Concomitant]
     Dosage: 100 TO 200 MG
     Dates: start: 20101126
  11. HYDROXY-ZINE PAM [Concomitant]
     Dates: start: 20101228
  12. GEODON [Concomitant]
     Dates: start: 20101228
  13. CLONAZEPAM [Concomitant]
     Dates: start: 20101116
  14. FEXOFENADINE [Concomitant]
     Dates: start: 20101109

REACTIONS (3)
  - Pancreatitis [Unknown]
  - Diabetic coma [Unknown]
  - Type 2 diabetes mellitus [Unknown]
